FAERS Safety Report 16388403 (Version 1)
Quarter: 2019Q3

REPORT INFORMATION
  Report Type: Spontaneous
  Country: US (occurrence: US)
  Receive Date: 20190601
  Receipt Date: 20190601
  Transmission Date: 20191004
  Serious: Yes (Disabling)
  Sender: FDA-Public Use
  Company Number: None

PATIENT
  Age: 32 Year
  Sex: Female
  Weight: 72 kg

DRUGS (6)
  1. SUBOXONE [Concomitant]
     Active Substance: BUPRENORPHINE HYDROCHLORIDE\NALOXONE HYDROCHLORIDE
  2. CYMBALTA [Concomitant]
     Active Substance: DULOXETINE HYDROCHLORIDE
  3. BUPRENORPHINE AND NALOXONE SUBLINGUAL FILM 12MG/3MG [Suspect]
     Active Substance: BUPRENORPHINE HYDROCHLORIDE\NALOXONE HYDROCHLORIDE
     Indication: PAIN
     Dosage: ?          QUANTITY:60 SUBLINGUAL FILM;?
     Route: 060
     Dates: start: 20190508, end: 20190601
  4. GENERESS [Concomitant]
  5. GABAPENTIN. [Concomitant]
     Active Substance: GABAPENTIN
  6. TRAZODONE [Concomitant]
     Active Substance: TRAZODONE HYDROCHLORIDE

REACTIONS (10)
  - Product substitution issue [None]
  - Fatigue [None]
  - Headache [None]
  - Rash [None]
  - Dyspepsia [None]
  - Constipation [None]
  - Feeling abnormal [None]
  - Depression [None]
  - Pain [None]
  - Cognitive disorder [None]

NARRATIVE: CASE EVENT DATE: 20190508
